FAERS Safety Report 6132761-8 (Version None)
Quarter: 2009Q1

REPORT INFORMATION
  Report Type: 
  Country: None (occurrence: None)
  Receive Date: 20090326
  Receipt Date: 20090323
  Transmission Date: 20090719
  Serious: Yes (Hospitalization)
  Sender: FDA-Public Use
  Company Number: SG-TEVA-185506ISR

PATIENT
  Sex: Male
  Weight: 55.2 kg

DRUGS (8)
  1. FLUOROURACIL [Suspect]
     Indication: COLORECTAL CANCER
     Route: 040
     Dates: start: 20080724
  2. FOLINIC ACID [Suspect]
     Indication: COLORECTAL CANCER
     Dates: start: 20080724
  3. SUNITINIB [Suspect]
     Indication: COLORECTAL CANCER
     Dosage: PLACEBO CONTROL
     Dates: start: 20080724
  4. IRINOTECAN HCL [Suspect]
     Indication: COLORECTAL CANCER
     Route: 042
     Dates: start: 20080724
  5. ATENOLOL [Concomitant]
     Dates: start: 20080717
  6. LACTULOSE [Concomitant]
     Dates: start: 20080806
  7. GLIBENCLAMIDE [Concomitant]
     Dates: start: 20000101
  8. NIFEDIPINE [Concomitant]
     Dates: start: 20080925

REACTIONS (4)
  - ESCHERICHIA INFECTION [None]
  - GASTRITIS [None]
  - INTESTINAL OBSTRUCTION [None]
  - PYREXIA [None]
